FAERS Safety Report 10982999 (Version 1)
Quarter: 2015Q1

REPORT INFORMATION
  Report Type: Spontaneous
  Country: AU (occurrence: None)
  Receive Date: 20150302
  Receipt Date: 20150302
  Transmission Date: 20150721
  Serious: Yes (Other)
  Sender: FDA-Public Use
  Company Number: 2014SYM00166

PATIENT
  Age: 40 Year
  Sex: Male

DRUGS (1)
  1. ACEON [Suspect]
     Active Substance: PERINDOPRIL ERBUMINE
     Indication: PROPHYLAXIS

REACTIONS (1)
  - Angioedema [None]

NARRATIVE: CASE EVENT DATE: 20090212
